FAERS Safety Report 21795505 (Version 2)
Quarter: 2023Q1

REPORT INFORMATION
  Report Type: Report from Study
  Country: US (occurrence: US)
  Receive Date: 20221229
  Receipt Date: 20230228
  Transmission Date: 20230418
  Serious: Yes (Other)
  Sender: FDA-Public Use
  Company Number: US-TAKEDA-US202030049

PATIENT
  Sex: Female

DRUGS (1)
  1. HUMAN IMMUNOGLOBULIN G [Suspect]
     Active Substance: HUMAN IMMUNOGLOBULIN G
     Indication: Primary immunodeficiency syndrome
     Dosage: UNK
     Route: 058
     Dates: start: 202006

REACTIONS (12)
  - Sjogren^s syndrome [Unknown]
  - Fatigue [Unknown]
  - Platelet count abnormal [Unknown]
  - Systemic lupus erythematosus [Unknown]
  - Frustration tolerance decreased [Unknown]
  - Rhinalgia [Unknown]
  - Stomatitis [Unknown]
  - Epistaxis [Unknown]
  - Asthenia [Unknown]
  - Myalgia [Unknown]
  - Hypersensitivity [Unknown]
  - COVID-19 [Recovered/Resolved]
